FAERS Safety Report 9008433 (Version 1)
Quarter: 2012Q4

REPORT INFORMATION
  Report Type: Spontaneous
  Country: US (occurrence: None)
  Receive Date: 20121227
  Receipt Date: 20121227
  Transmission Date: 20130627
  Serious: Yes (Other)
  Sender: FDA-Public Use
  Company Number: 2012GMK004526

PATIENT
  Sex: Female

DRUGS (1)
  1. MONTELUKAST SODIUM TABLETS [Suspect]
     Indication: DRUG USE  FOR UNKNOWN INDICATION
     Route: 048

REACTIONS (2)
  - Anaphylactic reaction [None]
  - Upper-airway cough syndrome [None]
